FAERS Safety Report 7860551-4 (Version None)
Quarter: 2011Q4

REPORT INFORMATION
  Report Type: 
  Country: None (occurrence: None)
  Receive Date: 20111027
  Receipt Date: 20111024
  Transmission Date: 20120403
  Serious: No
  Sender: FDA-Public Use
  Company Number: US-PFIZER INC-2011260307

PATIENT
  Sex: Female

DRUGS (5)
  1. CHANTIX [Suspect]
     Indication: SMOKING CESSATION THERAPY
     Dosage: 0.5 MG, DAILY
     Route: 048
  2. CYMBALTA [Suspect]
     Dosage: 60 MG, 2X/DAY
     Route: 048
  3. CYMBALTA [Suspect]
     Dosage: 60 MG, AS NEEDED
     Route: 048
  4. OMEPRAZOLE [Concomitant]
     Dosage: 20 MG, AS NEEDED
  5. LEVOTHYROXINE SODIUM [Concomitant]
     Indication: THYROID DISORDER
     Dosage: 125 UG, DAILY

REACTIONS (4)
  - FLATULENCE [None]
  - CONSTIPATION [None]
  - PAIN IN JAW [None]
  - NAUSEA [None]
